FAERS Safety Report 9444987 (Version 3)
Quarter: 2013Q3

REPORT INFORMATION
  Report Type: Spontaneous
  Country: JP (occurrence: None)
  Receive Date: 20130729
  Receipt Date: 20130906
  Transmission Date: 20140515
  Serious: Yes (Other)
  Sender: FDA-Public Use
  Company Number: 2013037016

PATIENT
  Age: 8 Year
  Sex: Female

DRUGS (8)
  1. SANGLOPOR [Suspect]
     Dosage: INTRAVENOUS (NOT OTHERWISE SPECIFIED)
     Route: 042
     Dates: start: 20130710, end: 20130711
  2. VOLTAREN /00372301/(DICLOFENAC) [Concomitant]
  3. MUCOSTA (REBAMIPIDE) [Concomitant]
  4. TOLEDOMIN (MILNACIPRAN HYDROCHLORIDE) [Concomitant]
  5. TRAMAL (TRAMADOL HYDROCHLORIDE) [Concomitant]
  6. CYTOTEC (MISOPROSTOL) [Concomitant]
  7. BREDININ (MIZORIBINE) [Concomitant]
  8. GRANDAXIN (TOFISOPAM) [Concomitant]

REACTIONS (3)
  - Meningitis aseptic [None]
  - Abdominal pain upper [None]
  - Eating disorder [None]
